FAERS Safety Report 11707503 (Version 1)
Quarter: 2015Q4

REPORT INFORMATION
  Report Type: Spontaneous
  Country: US (occurrence: US)
  Receive Date: 20151104
  Receipt Date: 20151104
  Transmission Date: 20160304
  Serious: No
  Sender: FDA-Public Use
  Company Number: US-ELI_LILLY_AND_COMPANY-US201102006041

PATIENT
  Age: 74 Year
  Sex: Female

DRUGS (2)
  1. FORTEO [Suspect]
     Active Substance: TERIPARATIDE
     Indication: OSTEOPOROSIS
     Dosage: 20 UG, DAILY (1/D)
  2. FORTEO [Suspect]
     Active Substance: TERIPARATIDE
     Dosage: 20 UG, DAILY (1/D)
     Dates: start: 20110215

REACTIONS (11)
  - Drug dose omission [Recovered/Resolved]
  - Dizziness [Unknown]
  - Arthralgia [Unknown]
  - Gastrointestinal disorder [Not Recovered/Not Resolved]
  - Arthralgia [Recovering/Resolving]
  - Fall [Recovered/Resolved]
  - Incorrect route of drug administration [Unknown]
  - Incorrect drug administration duration [Unknown]
  - Contusion [Unknown]
  - Headache [Unknown]
  - Incorrect dose administered [Unknown]

NARRATIVE: CASE EVENT DATE: 201010
